FAERS Safety Report 18604549 (Version 1)
Quarter: 2020Q4

REPORT INFORMATION
  Report Type: Spontaneous
  Country: DE (occurrence: DE)
  Receive Date: 20201211
  Receipt Date: 20201211
  Transmission Date: 20210114
  Serious: Yes (Other)
  Sender: FDA-Public Use
  Company Number: DE-ACCORD-210569

PATIENT
  Age: 27 Year
  Sex: Male

DRUGS (3)
  1. FLUOROURACIL. [Suspect]
     Active Substance: FLUOROURACIL
     Indication: ACINAR CELL CARCINOMA OF PANCREAS
  2. OXALIPLATIN. [Suspect]
     Active Substance: OXALIPLATIN
     Indication: ACINAR CELL CARCINOMA OF PANCREAS
  3. IRINOTECAN [Suspect]
     Active Substance: IRINOTECAN
     Indication: ACINAR CELL CARCINOMA OF PANCREAS

REACTIONS (4)
  - Weight decreased [Unknown]
  - Decreased appetite [Unknown]
  - Off label use [Unknown]
  - Nausea [Unknown]
